FAERS Safety Report 18281061 (Version 1)
Quarter: 2020Q3

REPORT INFORMATION
  Report Type: Spontaneous
  Country: DE (occurrence: DE)
  Receive Date: 20200918
  Receipt Date: 20200918
  Transmission Date: 20201103
  Serious: Yes (Hospitalization, Other)
  Sender: FDA-Public Use
  Company Number: DE-ALK-ABELLO A/S-2020AA002150

PATIENT

DRUGS (2)
  1. MOMETASONE [Concomitant]
     Active Substance: MOMETASONE
     Indication: PARANASAL SINUS DISCOMFORT
     Dosage: UNK UNK, PRN
     Route: 045
  2. ACARIZAX [Suspect]
     Active Substance: DERMATOPHAGOIDES FARINAE\DERMATOPHAGOIDES PTERONYSSINUS
     Indication: HYPERSENSITIVITY
     Dosage: 12 SQ?HDM
     Route: 060
     Dates: start: 20200416, end: 20200505

REACTIONS (4)
  - Dysphagia [Recovered/Resolved]
  - Palatal oedema [Recovered/Resolved]
  - Laryngeal oedema [Recovered/Resolved]
  - Sensation of foreign body [Recovered/Resolved]

NARRATIVE: CASE EVENT DATE: 20200505
